FAERS Safety Report 5310767-6 (Version None)
Quarter: 2007Q2

REPORT INFORMATION
  Report Type: 
  Country: None (occurrence: None)
  Receive Date: 20070428
  Receipt Date: 20070416
  Transmission Date: 20071010
  Serious: Yes (Other)
  Sender: FDA-Public Use
  Company Number: US-PFIZER INC-2007025220

PATIENT
  Sex: Female
  Weight: 56.7 kg

DRUGS (5)
  1. LYRICA [Suspect]
     Indication: PAIN
     Route: 048
     Dates: start: 20070101, end: 20070301
  2. NEURONTIN [Suspect]
     Indication: PAIN
     Dates: start: 20061215, end: 20061201
  3. NAPROXEN [Concomitant]
  4. LEVOTHYROXINE SODIUM [Concomitant]
  5. VITAMINS [Concomitant]

REACTIONS (4)
  - BLINDNESS [None]
  - DRUG INEFFECTIVE [None]
  - VISION BLURRED [None]
  - VISUAL ACUITY REDUCED [None]
